FAERS Safety Report 23610319 (Version 1)
Quarter: 2024Q1

REPORT INFORMATION
  Report Type: Spontaneous
  Country: US (occurrence: None)
  Receive Date: 20240307
  Receipt Date: 20240307
  Transmission Date: 20240410
  Serious: Yes (Other)
  Sender: FDA-Public Use
  Company Number: None

PATIENT
  Age: 26 Year
  Sex: Female
  Weight: 83.25 kg

DRUGS (1)
  1. MEDROXYPROGESTERONE [Suspect]
     Active Substance: MEDROXYPROGESTERONE
     Indication: Menstruation irregular
     Dosage: DAILY
     Dates: start: 20240228, end: 20240307

REACTIONS (7)
  - Dizziness [None]
  - Asthenia [None]
  - Chest pain [None]
  - Hyperhidrosis [None]
  - Tremor [None]
  - Thrombosis [None]
  - Discomfort [None]

NARRATIVE: CASE EVENT DATE: 20240307
